FAERS Safety Report 8564972-6 (Version None)
Quarter: 2012Q3

REPORT INFORMATION
  Report Type: 
  Country: None (occurrence: None)
  Receive Date: 20120803
  Receipt Date: 20120723
  Transmission Date: 20120928
  Serious: Yes (Disabling)
  Sender: FDA-Public Use
  Company Number: JP-ROCHE-1078971

PATIENT
  Sex: Male

DRUGS (3)
  1. ALTEPLASE [Suspect]
     Indication: CEREBRAL INFARCTION
  2. NICARDIPINE HCL [Concomitant]
     Dates: start: 20101203, end: 20101208
  3. RADICUT [Concomitant]
     Dates: start: 20101203, end: 20101216

REACTIONS (1)
  - CEREBRAL INFARCTION [None]
